FAERS Safety Report 7130571-6 (Version None)
Quarter: 2010Q4

REPORT INFORMATION
  Report Type: 
  Country: None (occurrence: None)
  Receive Date: 20101201
  Receipt Date: 20101119
  Transmission Date: 20110411
  Serious: Yes (Hospitalization)
  Sender: FDA-Public Use
  Company Number: BR-SANOFI-AVENTIS-2010SA071043

PATIENT
  Age: 60 Year
  Sex: Male
  Weight: 70 kg

DRUGS (9)
  1. CLOPIDOGREL BISULFATE [Suspect]
     Route: 065
     Dates: start: 20090921
  2. BLINDED THERAPY [Suspect]
     Indication: ACUTE CORONARY SYNDROME
     Route: 065
     Dates: start: 20090925
  3. ASPIRIN [Concomitant]
     Dates: start: 20100921
  4. NEBIVOLOL HCL [Concomitant]
     Dates: start: 20100921
  5. MONOCORDIL [Concomitant]
     Dates: start: 20101009
  6. LIPITOR [Concomitant]
     Dates: start: 20100923
  7. ISORDIL [Concomitant]
     Dates: start: 20091009
  8. OMEPRAZOLE [Concomitant]
     Dates: start: 20100920
  9. TYLENOL [Concomitant]
     Dates: start: 20100920

REACTIONS (1)
  - ANGINA UNSTABLE [None]
